FAERS Safety Report 8380854-7 (Version None)
Quarter: 2012Q2

REPORT INFORMATION
  Report Type: 
  Country: None (occurrence: None)
  Receive Date: 20120523
  Receipt Date: 20120515
  Transmission Date: 20120825
  Serious: Yes (Death, Hospitalization)
  Sender: FDA-Public Use
  Company Number: US-CELGENEUS-163-21880-11102368

PATIENT
  Sex: Male

DRUGS (27)
  1. LESCOL [Concomitant]
     Route: 065
  2. FLEXERIL [Concomitant]
     Route: 065
  3. REVLIMID [Suspect]
     Indication: MULTIPLE MYELOMA
     Dosage: 15 MILLIGRAM
     Route: 048
     Dates: start: 20070412
  4. REVLIMID [Suspect]
     Dosage: 5 MILLIGRAM
     Route: 048
     Dates: start: 20110225
  5. ZOMETA [Concomitant]
     Dosage: 3 MILLIGRAM
     Route: 065
     Dates: start: 20081028, end: 20090803
  6. LOPRESSOR [Concomitant]
     Route: 065
  7. LASIX [Concomitant]
     Route: 065
  8. ZOMETA [Concomitant]
     Dosage: 3 MILLIGRAM
     Route: 065
     Dates: start: 20090917
  9. COREG [Concomitant]
     Route: 065
  10. LIDOCAINE [Concomitant]
     Route: 065
  11. TRAMADOL HYDROCHLORIDE [Concomitant]
     Route: 065
  12. REGLAN [Concomitant]
     Route: 065
  13. REVLIMID [Suspect]
     Dosage: 5 MILLIGRAM
     Route: 048
     Dates: start: 20110401
  14. POTASSIUM CHLORIDE [Concomitant]
     Route: 065
  15. AMOXICILLIN [Concomitant]
     Route: 065
  16. AMIODARONE HCL [Concomitant]
     Route: 041
  17. PERIDEX [Concomitant]
     Route: 065
  18. INVANZ [Concomitant]
     Route: 065
  19. ZOMETA [Concomitant]
     Dosage: 4 MILLIGRAM
     Route: 065
     Dates: start: 20071203, end: 20080827
  20. ASPIRIN [Concomitant]
     Route: 065
  21. LEXAPRO [Concomitant]
     Route: 065
  22. ANTIBIOTICS [Concomitant]
     Route: 065
  23. VICODIN [Concomitant]
     Route: 065
  24. LOVENOX [Concomitant]
     Dosage: UNKNOWN
  25. ALLOPURINOL [Concomitant]
     Route: 065
  26. WHOLE BLOOD [Concomitant]
     Route: 065
     Dates: start: 20111101
  27. ALBUTEROL [Concomitant]
     Dosage: UNKNOWN

REACTIONS (6)
  - OSTEONECROSIS OF JAW [None]
  - VENTRICULAR TACHYCARDIA [None]
  - OSTEOMYELITIS [None]
  - CARDIOMYOPATHY [None]
  - PYREXIA [None]
  - MYOCARDIAL INFARCTION [None]
